FAERS Safety Report 8585837-X (Version None)
Quarter: 2012Q3

REPORT INFORMATION
  Report Type: 
  Country: None (occurrence: None)
  Receive Date: 20120810
  Receipt Date: 20120731
  Transmission Date: 20120928
  Serious: Yes (Hospitalization)
  Sender: FDA-Public Use
  Company Number: US-BAYER-2012-046307

PATIENT
  Age: 30 Year
  Sex: Female

DRUGS (5)
  1. CEFTIN [Concomitant]
  2. YAZ [Suspect]
  3. ADVIL [Concomitant]
     Indication: HEADACHE
     Route: 048
  4. YASMIN [Suspect]
     Indication: CONTRACEPTION
  5. M.V.I. [Concomitant]
     Route: 048

REACTIONS (9)
  - QUALITY OF LIFE DECREASED [None]
  - PAIN [None]
  - PULMONARY EMBOLISM [None]
  - FEAR [None]
  - ANHEDONIA [None]
  - DEEP VEIN THROMBOSIS [None]
  - INJURY [None]
  - ANXIETY [None]
  - EMOTIONAL DISTRESS [None]
